FAERS Safety Report 14764018 (Version 1)
Quarter: 2018Q2

REPORT INFORMATION
  Report Type: Spontaneous
  Country: FR (occurrence: FR)
  Receive Date: 20180416
  Receipt Date: 20180416
  Transmission Date: 20180711
  Serious: Yes (Hospitalization, Other)
  Sender: FDA-Public Use
  Company Number: FR-BAUSCH-BL-2018-009535

PATIENT
  Age: 2 Year
  Sex: Male

DRUGS (21)
  1. METHOTREXATE (METHOTREXATE SODIUM) [Suspect]
     Active Substance: METHOTREXATE SODIUM
     Route: 037
     Dates: start: 20171005, end: 20171005
  2. VINCRISTINE [Suspect]
     Active Substance: VINCRISTINE
     Route: 042
     Dates: start: 20170915, end: 20170915
  3. CYTARABINE. [Suspect]
     Active Substance: CYTARABINE
     Route: 065
     Dates: start: 20171005, end: 20171008
  4. DOXORUBICIN [Suspect]
     Active Substance: DOXORUBICIN
     Indication: ACUTE LYMPHOCYTIC LEUKAEMIA
     Dosage: UNK
     Route: 042
     Dates: start: 20170831, end: 20170831
  5. CORTIC                             /00028604/ [Suspect]
     Active Substance: HYDROCORTISONE ACETATE
     Indication: ACUTE LYMPHOCYTIC LEUKAEMIA
     Dosage: 12.6 MG, UNK
     Route: 037
     Dates: start: 20170904, end: 20170904
  6. 6-MP [Suspect]
     Active Substance: MERCAPTOPURINE
     Indication: ACUTE LYMPHOCYTIC LEUKAEMIA
     Dosage: 420 MG, UNK
     Route: 048
     Dates: start: 20171003, end: 20171016
  7. VINCRISTINE [Suspect]
     Active Substance: VINCRISTINE
     Indication: ACUTE LYMPHOCYTIC LEUKAEMIA
     Route: 042
     Dates: start: 20170831, end: 20170831
  8. CYTARABINE. [Suspect]
     Active Substance: CYTARABINE
     Indication: ACUTE LYMPHOCYTIC LEUKAEMIA
     Dosage: 25 MG, UNK
     Route: 037
     Dates: start: 20170904, end: 20171006
  9. ONCASPAR [Suspect]
     Active Substance: PEGASPARGASE
     Dosage: 1275 IU, UNK
     Route: 065
     Dates: start: 20171017, end: 20171017
  10. DEXAMETHASONE. [Suspect]
     Active Substance: DEXAMETHASONE
     Indication: ACUTE LYMPHOCYTIC LEUKAEMIA
     Dosage: 31.5 MG TOTAL DOSE FOR DAY 15-21
     Route: 048
     Dates: start: 20170915, end: 20170921
  11. METHOTREXATE (METHOTREXATE SODIUM) [Suspect]
     Active Substance: METHOTREXATE SODIUM
     Indication: ACUTE LYMPHOCYTIC LEUKAEMIA
     Route: 037
     Dates: start: 20170904, end: 20170904
  12. DOXORUBICIN [Suspect]
     Active Substance: DOXORUBICIN
     Dosage: 12.4 MG, UNK
     Route: 042
     Dates: start: 20170908, end: 20170908
  13. DOXORUBICIN [Suspect]
     Active Substance: DOXORUBICIN
     Dosage: 12.4 MG, UNK
     Route: 042
     Dates: start: 20170915, end: 20170915
  14. CYCLOPHOSPHAMIDE. [Suspect]
     Active Substance: CYCLOPHOSPHAMIDE
     Indication: ACUTE LYMPHOCYTIC LEUKAEMIA
     Dosage: UNK
     Route: 065
     Dates: start: 20171003, end: 20171003
  15. VINCRISTINE [Suspect]
     Active Substance: VINCRISTINE
     Route: 042
     Dates: start: 20170908, end: 20170908
  16. CYTARABINE. [Suspect]
     Active Substance: CYTARABINE
     Route: 065
     Dates: start: 20171012, end: 20171015
  17. ONCASPAR [Suspect]
     Active Substance: PEGASPARGASE
     Indication: ACUTE LYMPHOCYTIC LEUKAEMIA
     Dosage: 1275 IU, UNK
     Route: 065
     Dates: start: 20170904, end: 20170904
  18. CORTIC                             /00028604/ [Suspect]
     Active Substance: HYDROCORTISONE ACETATE
     Dosage: 12.5 UNK, UNK
     Route: 037
     Dates: start: 20171005, end: 20171005
  19. VINCRISTINE [Suspect]
     Active Substance: VINCRISTINE
     Route: 042
     Dates: start: 20171017, end: 20171017
  20. ARA-C [Suspect]
     Active Substance: CYTARABINE
     Indication: ACUTE LYMPHOCYTIC LEUKAEMIA
     Dosage: 25 MG, UNK
     Route: 037
     Dates: start: 20170904, end: 20170904
  21. ARA-C [Suspect]
     Active Substance: CYTARABINE
     Dosage: 25 MG, UNK
     Route: 037
     Dates: start: 20171005, end: 20171005

REACTIONS (1)
  - Febrile neutropenia [Recovered/Resolved]

NARRATIVE: CASE EVENT DATE: 20171022
